FAERS Safety Report 8287238-0 (Version None)
Quarter: 2012Q2

REPORT INFORMATION
  Report Type: 
  Country: None (occurrence: None)
  Receive Date: 20120416
  Receipt Date: 20120405
  Transmission Date: 20120825
  Serious: Yes (Other)
  Sender: FDA-Public Use
  Company Number: JP-SANOFI-AVENTIS-2012SA023191

PATIENT
  Age: 54 Year
  Sex: Female

DRUGS (4)
  1. FLUOROURACIL [Concomitant]
     Indication: COLON CANCER
     Dosage: DAY 1-2, TOTAL OF 3 CYCLES
     Route: 040
     Dates: start: 20081101
  2. OXALIPLATIN [Suspect]
     Indication: COLON CANCER
     Route: 041
     Dates: start: 20081101
  3. LEUCOVORIN CALCIUM [Suspect]
     Indication: COLON CANCER
     Route: 041
     Dates: start: 20081101
  4. FLUOROURACIL [Concomitant]
     Dosage: DAY 1-2, TOTAL OF 3 CYCLES
     Route: 042
     Dates: start: 20081101

REACTIONS (2)
  - TROUSSEAU'S SYNDROME [None]
  - DISSEMINATED INTRAVASCULAR COAGULATION [None]
